FAERS Safety Report 5908036-6 (Version None)
Quarter: 2008Q4

REPORT INFORMATION
  Report Type: 
  Country: None (occurrence: None)
  Receive Date: 20081003
  Receipt Date: 20080929
  Transmission Date: 20090506
  Serious: Yes (Other)
  Sender: FDA-Public Use
  Company Number: US-B.I. PHARMACEUTICALS,INC./RIDGEFIELD-2008-BP-14772BP

PATIENT
  Sex: Female

DRUGS (1)
  1. DULCOLAX [Suspect]
     Indication: CONSTIPATION
     Dosage: 5MG
     Route: 048
     Dates: start: 20080920

REACTIONS (4)
  - DIARRHOEA [None]
  - MUSCLE SPASMS [None]
  - SYNCOPE [None]
  - VOMITING [None]
